FAERS Safety Report 16961816 (Version 1)
Quarter: 2019Q4

REPORT INFORMATION
  Report Type: Spontaneous
  Country: US (occurrence: US)
  Receive Date: 20190906
  Receipt Date: 20190906
  Transmission Date: 20200122
  Serious: No
  Sender: FDA-Public Use
  Company Number: None

PATIENT
  Sex: Female

DRUGS (2)
  1. IMMUNE GLOBULIN SUBCUTANEOUS (HUMAN) [Suspect]
     Active Substance: HUMAN IMMUNOGLOBULIN G
     Indication: IMMUNODEFICIENCY COMMON VARIABLE
     Dosage: ?          OTHER DOSE:SUPPLY;?
     Route: 058
     Dates: start: 20190625
  2. 12MM HIGH FLO RMS4-2612 [DEVICE] [Concomitant]
     Active Substance: DEVICE

REACTIONS (2)
  - Infusion site extravasation [None]
  - Needle issue [None]
